FAERS Safety Report 10692795 (Version 2)
Quarter: 2015Q2

REPORT INFORMATION
  Report Type: Report from Study
  Country: TR (occurrence: TR)
  Receive Date: 20150106
  Receipt Date: 20150529
  Transmission Date: 20150821
  Serious: Yes (Hospitalization)
  Sender: FDA-Public Use
  Company Number: TR-NOVOPROD-434003

PATIENT
  Sex: Female
  Weight: 3.7 kg

DRUGS (4)
  1. ACTRAPID [Suspect]
     Active Substance: INSULIN HUMAN
     Indication: TYPE 2 DIABETES MELLITUS
     Dosage: 6 U, QD
     Route: 064
     Dates: start: 20140919, end: 20141209
  2. ELEVIT                             /01730301/ [Concomitant]
     Indication: VITAMIN SUPPLEMENTATION
     Dosage: QD
     Route: 064
     Dates: start: 201402, end: 20141209
  3. GYNOFERON                          /02994301/ [Concomitant]
     Indication: MINERAL SUPPLEMENTATION
     Dosage: UNK (QD)
     Route: 064
     Dates: start: 20140730, end: 20141210
  4. ASPIRIN. [Concomitant]
     Active Substance: ASPIRIN
     Indication: PLATELET AGGREGATION ABNORMAL
     Dosage: 1X1
     Route: 064
     Dates: start: 201402, end: 201411

REACTIONS (2)
  - Neonatal infection [Recovered/Resolved]
  - Foetal exposure during pregnancy [Recovered/Resolved]

NARRATIVE: CASE EVENT DATE: 20140919
